FAERS Safety Report 5427199-2 (Version None)
Quarter: 2007Q3

REPORT INFORMATION
  Report Type: 
  Country: None (occurrence: None)
  Receive Date: 20070823
  Receipt Date: 20070823
  Transmission Date: 20080115
  Serious: No
  Sender: FDA-Public Use
  Company Number: None

PATIENT

DRUGS (3)
  1. TOPROL-XL [Suspect]
     Dosage: TABLET
  2. TOPROL-XL [Suspect]
     Dosage: TABLET
  3. MAXZIDE [Suspect]
     Dosage: TABLET

REACTIONS (7)
  - BASEDOW'S DISEASE [None]
  - DRUG HYPERSENSITIVITY [None]
  - DYSPNOEA [None]
  - FALL [None]
  - MEDICATION ERROR [None]
  - SOMNOLENCE [None]
  - TREATMENT NONCOMPLIANCE [None]
